FAERS Safety Report 24117836 (Version 1)
Quarter: 2024Q3

REPORT INFORMATION
  Report Type: Other
  Country: MA (occurrence: MA)
  Receive Date: 20240722
  Receipt Date: 20240722
  Transmission Date: 20241016
  Serious: Yes (Life-Threatening, Hospitalization)
  Sender: TAMARANG PHARMACEUTICALS
  Company Number: MA-Tamarang, S.A.-2159416

PATIENT

DRUGS (1)
  1. ROCURONIUM BROMIDE [Suspect]
     Active Substance: ROCURONIUM BROMIDE
     Route: 030

REACTIONS (2)
  - Bradycardia [Recovered/Resolved]
  - Product administration error [Recovered/Resolved]
